FAERS Safety Report 8911052 (Version 1)
Quarter: 2012Q4

REPORT INFORMATION
  Report Type: 
  Country: CN (occurrence: CN)
  Receive Date: 20121116
  Receipt Date: 20121116
  Transmission Date: 20130627
  Serious: Yes (Death, Life-Threatening, Other)
  Sender: FDA-Public Use
  Company Number: CN-ASTELLAS-2012US011065

PATIENT
  Age: 64 None
  Sex: Male
  Weight: 64 kg

DRUGS (3)
  1. TARCEVA [Suspect]
     Indication: ADENOCARCINOMA
     Dosage: 150 mg, UID/QD
     Route: 048
     Dates: start: 201107, end: 20110731
  2. TARCEVA [Suspect]
     Dosage: 100 mg, UID/QD
     Route: 048
     Dates: start: 20110801
  3. IMODIUM [Suspect]
     Indication: DIARRHOEA
     Dosage: UNK
     Route: 048
     Dates: start: 201107

REACTIONS (9)
  - Cardiac arrest [Fatal]
  - Respiratory arrest [Fatal]
  - Hydrothorax [Not Recovered/Not Resolved]
  - Metastases to pleura [Not Recovered/Not Resolved]
  - Metastases to lung [Not Recovered/Not Resolved]
  - Bone pain [Not Recovered/Not Resolved]
  - Diarrhoea [Not Recovered/Not Resolved]
  - Abdominal pain upper [Not Recovered/Not Resolved]
  - Dyspnoea [Not Recovered/Not Resolved]
